FAERS Safety Report 7553700-9 (Version None)
Quarter: 2011Q2

REPORT INFORMATION
  Report Type: 
  Country: None (occurrence: None)
  Receive Date: 20110617
  Receipt Date: 20110608
  Transmission Date: 20111010
  Serious: Yes (Other)
  Sender: FDA-Public Use
  Company Number: FR-NOVOPROD-329530

PATIENT
  Age: 61 Year
  Sex: Male

DRUGS (7)
  1. AMALLINE [Concomitant]
  2. VICTOZA [Suspect]
     Indication: PRODUCT USED FOR UNKNOWN INDICATION
     Dosage: UNK
     Route: 065
     Dates: start: 20101101
  3. ACTOS [Concomitant]
  4. ATARAX [Concomitant]
  5. METFORMIN HCL [Concomitant]
  6. PINAVERIUM [Concomitant]
  7. TADENAN                            /00628801/ [Concomitant]

REACTIONS (1)
  - MESENTERIC PANNICULITIS [None]
